FAERS Safety Report 9368938 (Version 1)
Quarter: 2013Q2

REPORT INFORMATION
  Report Type: Spontaneous
  Country: TR (occurrence: TR)
  Receive Date: 20130626
  Receipt Date: 20130626
  Transmission Date: 20140414
  Serious: Yes (Other)
  Sender: FDA-Public Use
  Company Number: TR-BAYER-2013-078162

PATIENT
  Age: 38 Year
  Sex: Female
  Weight: 64 kg

DRUGS (3)
  1. BETAFERON [Suspect]
     Dosage: UNK
  2. BETAJECT COMFORT [Suspect]
  3. BENEXOL B12 [Concomitant]
     Dosage: UNK

REACTIONS (5)
  - Erythema [None]
  - Skin swelling [None]
  - Multiple sclerosis [None]
  - Chills [None]
  - Device failure [None]
